FAERS Safety Report 20896145 (Version 1)
Quarter: 2022Q2

REPORT INFORMATION
  Report Type: Spontaneous
  Country: US (occurrence: US)
  Receive Date: 20220531
  Receipt Date: 20220531
  Transmission Date: 20220721
  Serious: No
  Sender: FDA-Public Use
  Company Number: US-NOVARTISTESTPH-NVSC2022US122086

PATIENT
  Sex: Female

DRUGS (2)
  1. MINOCYCLINE HYDROCHLORIDE [Suspect]
     Active Substance: MINOCYCLINE HYDROCHLORIDE
     Indication: Eye infection
     Dosage: 2 DOSAGE FORM, QD
     Route: 065
  2. MINOCYCLINE HYDROCHLORIDE [Suspect]
     Active Substance: MINOCYCLINE HYDROCHLORIDE
     Dosage: 1 DOSAGE FORM, QD
     Route: 065

REACTIONS (5)
  - Balance disorder [Unknown]
  - Musculoskeletal discomfort [Unknown]
  - Nail discolouration [Unknown]
  - Hair colour changes [Unknown]
  - Lip discolouration [Unknown]
